FAERS Safety Report 23033078 (Version 1)
Quarter: 2023Q4

REPORT INFORMATION
  Report Type: Spontaneous
  Country: US (occurrence: None)
  Receive Date: 20231004
  Receipt Date: 20231004
  Transmission Date: 20240110
  Serious: Yes (Other)
  Sender: FDA-Public Use
  Company Number: None

PATIENT
  Age: 41 Year
  Sex: Female
  Weight: 111.15 kg

DRUGS (1)
  1. AIMOVIG [Suspect]
     Active Substance: ERENUMAB-AOOE
     Indication: Migraine
     Dates: start: 20230926, end: 20230926

REACTIONS (9)
  - Hot flush [None]
  - Breast pain [None]
  - Hyperaesthesia [None]
  - Pain of skin [None]
  - Dyspepsia [None]
  - Nausea [None]
  - Cough [None]
  - Breast tenderness [None]
  - Erythema [None]

NARRATIVE: CASE EVENT DATE: 20230930
